FAERS Safety Report 10098860 (Version 3)
Quarter: 2014Q2

REPORT INFORMATION
  Report Type: Report from Study
  Country: CA (occurrence: CA)
  Receive Date: 20140423
  Receipt Date: 20140430
  Transmission Date: 20141212
  Serious: Yes (Other)
  Sender: FDA-Public Use
  Company Number: CA-ROCHE-1332865

PATIENT
  Age: 52 Year
  Sex: Female
  Weight: 101.6 kg

DRUGS (13)
  1. ACTEMRA [Suspect]
     Indication: RHEUMATOID ARTHRITIS
     Route: 042
     Dates: start: 20131218
  2. ACTEMRA [Suspect]
     Route: 042
     Dates: start: 20140218
  3. COLACE [Concomitant]
  4. VOLTAREN [Concomitant]
  5. HYDROXYCHLOROQUINE [Concomitant]
  6. ARAVA [Concomitant]
  7. RISEDRONATE [Concomitant]
  8. SYNTHROID [Concomitant]
  9. ELTROXIN [Concomitant]
  10. WELLBUTRIN [Concomitant]
  11. TYLENOL #3 (CANADA) [Concomitant]
  12. REMERON [Concomitant]
  13. FISH OIL [Concomitant]

REACTIONS (10)
  - Arthropathy [Not Recovered/Not Resolved]
  - Chest discomfort [Recovering/Resolving]
  - Nasopharyngitis [Unknown]
  - Headache [Not Recovered/Not Resolved]
  - Hypertension [Unknown]
  - Dyspepsia [Not Recovered/Not Resolved]
  - Abdominal tenderness [Not Recovered/Not Resolved]
  - Blood pressure increased [Unknown]
  - Anxiety [Unknown]
  - Stress [Unknown]
